FAERS Safety Report 11631817 (Version 2)
Quarter: 2015Q4

REPORT INFORMATION
  Report Type: Other
  Country: FR (occurrence: FR)
  Receive Date: 20151015
  Receipt Date: 20151124
  Transmission Date: 20160304
  Serious: Yes (Hospitalization, Other)
  Sender: FDA-Public Use
  Company Number: FR-TAKEDA-2015TJP019116

PATIENT
  Age: 64 Year
  Sex: Female

DRUGS (13)
  1. DIAMICRON [Suspect]
     Active Substance: GLICLAZIDE
     Indication: TYPE 2 DIABETES MELLITUS
     Dosage: 60 MG, QD
     Route: 048
  2. AMOXICILLIN, CLAVULANIC ACID [Suspect]
     Active Substance: AMOXICILLIN\CLAVULANIC ACID
     Indication: PYELONEPHRITIS
     Dosage: 1G/200 MG, 1 BOTTLE EVERY 8 HOURS
     Route: 048
     Dates: start: 20150911
  3. ATACAND [Suspect]
     Active Substance: CANDESARTAN CILEXETIL
     Indication: HYPERTENSION
     Dosage: 4 MG, QD
     Route: 048
  4. ATACAND [Suspect]
     Active Substance: CANDESARTAN CILEXETIL
     Dosage: UNK
     Route: 048
  5. ESOMEPRAZOLE [Suspect]
     Active Substance: ESOMEPRAZOLE
     Indication: PRODUCT USED FOR UNKNOWN INDICATION
     Dosage: MYLAN, 40 MG, QD
     Route: 048
  6. LANTUS [Suspect]
     Active Substance: INSULIN GLARGINE
     Indication: TYPE 2 DIABETES MELLITUS
     Dosage: 20 IU, QD
     Route: 058
  7. AMOXICILLIN. [Suspect]
     Active Substance: AMOXICILLIN
     Indication: PYELONEPHRITIS
     Dosage: 2 G, Q8HR
     Route: 042
     Dates: start: 20150912
  8. METFORMIN [Suspect]
     Active Substance: METFORMIN HYDROCHLORIDE
     Indication: TYPE 2 DIABETES MELLITUS
     Dosage: 1000 MG, BID
     Route: 048
     Dates: end: 20150915
  9. LANSOPRAZOLE. [Suspect]
     Active Substance: LANSOPRAZOLE
     Indication: PRODUCT USED FOR UNKNOWN INDICATION
     Dosage: 30 MG, QD
     Route: 048
     Dates: start: 20150912
  10. KARDEGIC [Concomitant]
     Active Substance: ASPIRIN LYSINE
     Dosage: UNK
  11. VICTOZA [Suspect]
     Active Substance: LIRAGLUTIDE
     Indication: TYPE 2 DIABETES MELLITUS
     Dosage: 1.2 MG, QD
     Route: 058
  12. ATORVASTATIN [Suspect]
     Active Substance: ATORVASTATIN
     Indication: HYPERCHOLESTEROLAEMIA
     Dosage: 10 MG, QD
     Route: 048
     Dates: end: 20150915
  13. FUROSEMIDE. [Suspect]
     Active Substance: FUROSEMIDE
     Indication: CARDIAC FAILURE
     Dosage: 1 DF AT MORNING AND NIGHT 0.5 DF AT MIDDAY
     Route: 048
     Dates: start: 20150912, end: 20150915

REACTIONS (6)
  - Hepatic failure [Not Recovered/Not Resolved]
  - Anaemia [Unknown]
  - Cystitis escherichia [Unknown]
  - Pyelonephritis [Unknown]
  - Inflammation [Unknown]
  - Rash [Unknown]

NARRATIVE: CASE EVENT DATE: 20150901
